FAERS Safety Report 6400495-8 (Version None)
Quarter: 2009Q4

REPORT INFORMATION
  Report Type: 
  Country: None (occurrence: None)
  Receive Date: 20091013
  Receipt Date: 20091013
  Transmission Date: 20100525
  Serious: No
  Sender: FDA-Public Use
  Company Number: None

PATIENT
  Age: 45 Year
  Sex: Female
  Weight: 61.6892 kg

DRUGS (1)
  1. RECLAST [Suspect]
     Indication: OSTEOPOROSIS
     Dates: start: 20090512, end: 20091010

REACTIONS (5)
  - ARTHRALGIA [None]
  - MYALGIA [None]
  - NO THERAPEUTIC RESPONSE [None]
  - PAIN [None]
  - PNEUMONIA [None]
